FAERS Safety Report 25323475 (Version 1)
Quarter: 2025Q2

REPORT INFORMATION
  Report Type: Spontaneous
  Country: US (occurrence: US)
  Receive Date: 20250516
  Receipt Date: 20250516
  Transmission Date: 20250717
  Serious: No
  Sender: ELI LILLY AND COMPANY
  Company Number: US-ELI_LILLY_AND_COMPANY-US202505011504

PATIENT
  Age: 25 Year
  Sex: Female

DRUGS (3)
  1. BARICITINIB [Suspect]
     Active Substance: BARICITINIB
     Indication: Alopecia areata
     Route: 065
     Dates: start: 20231002
  2. BARICITINIB [Suspect]
     Active Substance: BARICITINIB
     Route: 065
  3. MINOXIDIL [Concomitant]
     Active Substance: MINOXIDIL
     Indication: Alopecia areata

REACTIONS (1)
  - Haemoglobin decreased [Not Recovered/Not Resolved]

NARRATIVE: CASE EVENT DATE: 20240601
